FAERS Safety Report 22235770 (Version 3)
Quarter: 2023Q2

REPORT INFORMATION
  Report Type: Spontaneous
  Country: CN (occurrence: None)
  Receive Date: 20230420
  Receipt Date: 20230512
  Transmission Date: 20230721
  Serious: Yes (Other)
  Sender: FDA-Public Use
  Company Number: 2023A086672

PATIENT
  Sex: Male
  Weight: 19 kg

DRUGS (2)
  1. SYMBICORT [Suspect]
     Active Substance: BUDESONIDE\FORMOTEROL FUMARATE DIHYDRATE
     Dosage: 80/4.5 UG, TWO TIMES A DAY
     Route: 055
     Dates: start: 20221129
  2. SYMBICORT [Suspect]
     Active Substance: BUDESONIDE\FORMOTEROL FUMARATE DIHYDRATE
     Dosage: 80/4.5 UG, DAILY
     Route: 055
     Dates: start: 202302

REACTIONS (4)
  - Creatinine urine increased [Unknown]
  - Pollakiuria [Recovered/Resolved]
  - Adrenal suppression [Unknown]
  - Product use issue [Unknown]

NARRATIVE: CASE EVENT DATE: 20230101
